FAERS Safety Report 11528978 (Version 1)
Quarter: 2015Q3

REPORT INFORMATION
  Report Type: Report from Study
  Country: US (occurrence: US)
  Receive Date: 20150921
  Receipt Date: 20150921
  Transmission Date: 20151125
  Serious: Yes (Other)
  Sender: FDA-Public Use
  Company Number: US-AMGEN-USASP2015095849

PATIENT
  Age: 37 Year
  Sex: Female

DRUGS (1)
  1. ENBREL [Suspect]
     Active Substance: ETANERCEPT
     Indication: PRODUCT USED FOR UNKNOWN INDICATION
     Dosage: UNK
     Route: 065

REACTIONS (11)
  - Adrenal neoplasm [Unknown]
  - Blood pressure abnormal [Unknown]
  - Dysgeusia [Unknown]
  - General physical health deterioration [Unknown]
  - Autoimmune thyroiditis [Unknown]
  - Sensory disturbance [Unknown]
  - Thyroid disorder [Unknown]
  - Rheumatoid arthritis [Unknown]
  - Memory impairment [Unknown]
  - Palpitations [Unknown]
  - No therapeutic response [Unknown]
